FAERS Safety Report 24918388 (Version 1)
Quarter: 2025Q1

REPORT INFORMATION
  Report Type: Spontaneous
  Country: US (occurrence: US)
  Receive Date: 20250203
  Receipt Date: 20250203
  Transmission Date: 20250408
  Serious: No
  Sender: MERCK
  Company Number: US-009507513-2501USA011049

PATIENT
  Age: 59 Year
  Sex: Female

DRUGS (1)
  1. STROMECTOL [Suspect]
     Active Substance: IVERMECTIN
     Indication: Adenocarcinoma of the cervix
     Route: 048

REACTIONS (1)
  - Product use in unapproved indication [Unknown]
